FAERS Safety Report 5773761-7 (Version None)
Quarter: 2008Q2

REPORT INFORMATION
  Report Type: 
  Country: None (occurrence: None)
  Receive Date: 20080616
  Receipt Date: 20080610
  Transmission Date: 20081010
  Serious: Yes (Hospitalization, Other)
  Sender: FDA-Public Use
  Company Number: CH-WYE-G01490508

PATIENT
  Age: 61 Year
  Sex: Female
  Weight: 60 kg

DRUGS (2)
  1. EFFEXOR [Suspect]
     Indication: DEPRESSION
     Route: 048
     Dates: start: 20070901, end: 20080430
  2. CITALOPRAM HYDROBROMIDE [Suspect]
     Indication: DEPRESSION
     Dates: start: 20080402, end: 20080430

REACTIONS (5)
  - ANTIDEPRESSANT DRUG LEVEL INCREASED [None]
  - DRUG INEFFECTIVE [None]
  - MUSCULAR WEAKNESS [None]
  - MYALGIA [None]
  - SEROTONIN SYNDROME [None]
